FAERS Safety Report 15606574 (Version 1)
Quarter: 2018Q4

REPORT INFORMATION
  Report Type: Spontaneous
  Country: US (occurrence: US)
  Receive Date: 20181112
  Receipt Date: 20181112
  Transmission Date: 20190205
  Serious: No
  Sender: FDA-Public Use
  Company Number: US-009507513-1810USA012913

PATIENT
  Sex: Female

DRUGS (3)
  1. PRINIVIL [Suspect]
     Active Substance: LISINOPRIL
     Dosage: DECREASED THE AFTERNOON DOSE TO 200 MILLIGRAM
  2. GABAPENTIN. [Suspect]
     Active Substance: GABAPENTIN
  3. PRINIVIL [Suspect]
     Active Substance: LISINOPRIL
     Dosage: 300 MILLIGRAM, TID

REACTIONS (14)
  - Anxiety [Unknown]
  - Therapy change [Unknown]
  - Hypoaesthesia [Unknown]
  - Dizziness [Unknown]
  - Drug hypersensitivity [Unknown]
  - Hyperhidrosis [Unknown]
  - Memory impairment [Unknown]
  - Flushing [Unknown]
  - Toxicity to various agents [Unknown]
  - Vision blurred [Unknown]
  - Palpitations [Unknown]
  - Fatigue [Unknown]
  - Insomnia [Unknown]
  - Feeling abnormal [Unknown]
